FAERS Safety Report 7414705-1 (Version None)
Quarter: 2011Q2

REPORT INFORMATION
  Report Type: 
  Country: None (occurrence: None)
  Receive Date: 20110414
  Receipt Date: 20110408
  Transmission Date: 20111010
  Serious: Yes (Hospitalization, Other)
  Sender: FDA-Public Use
  Company Number: IT-TEVA-266821ISR

PATIENT
  Sex: Male
  Weight: 84 kg

DRUGS (14)
  1. LENALIDOMIDE (CC-5013) [Suspect]
     Dosage: 15 MILLIGRAM;
     Route: 048
     Dates: start: 20110202
  2. TORASEMIDE SODIUM [Concomitant]
     Indication: ARRHYTHMIA SUPRAVENTRICULAR
     Dosage: 10 MILLIGRAM;
     Route: 048
     Dates: start: 20110105
  3. FILGRASTIM [Concomitant]
     Indication: NEUTROPENIA
     Dosage: .3 MILLIGRAM;
     Route: 058
     Dates: start: 20101215, end: 20101217
  4. DEXAMETHASONE [Suspect]
     Indication: MULTIPLE MYELOMA
     Dosage: 20 MILLIGRAM;
     Dates: start: 20101020
  5. DEXAMETHASONE [Suspect]
     Dates: start: 20100202
  6. ZOFENOPRIL CALCIUM [Concomitant]
     Indication: HYPERTENSION
     Dosage: 7.5 MILLIGRAM;
     Route: 048
     Dates: start: 20100201
  7. SULFAMETHOXAZOLE W/TRIMETHOPRIM [Concomitant]
     Indication: ANTIBIOTIC PROPHYLAXIS
     Route: 048
     Dates: start: 20101020
  8. LENALIDOMIDE (CC-5013) [Suspect]
     Indication: MULTIPLE MYELOMA
     Dosage: 25 MILLIGRAM;
     Route: 048
     Dates: start: 20101020
  9. LANSOPRAZOLE [Concomitant]
     Indication: PROPHYLAXIS AGAINST GASTROINTESTINAL ULCER
     Dosage: 30 MILLIGRAM;
     Route: 048
     Dates: start: 20101020
  10. DEXAMETHASONE [Suspect]
     Dosage: 20 MILLIGRAM;
     Dates: start: 20101222, end: 20110119
  11. ACETYLSALICYLIC ACID SRT [Concomitant]
     Indication: THROMBOSIS PROPHYLAXIS
     Dosage: 100 MILLIGRAM;
     Route: 048
     Dates: start: 20101020
  12. LENALIDOMIDE (CC-5013) [Suspect]
     Dosage: 20 MILLIGRAM;
     Route: 048
     Dates: start: 20101222, end: 20110119
  13. ALLOPURINOL [Concomitant]
     Indication: HYPERURICAEMIA
     Dosage: 300 MILLIGRAM;
     Route: 048
     Dates: start: 19900101
  14. RAMIPRIL [Concomitant]
     Indication: ARRHYTHMIA SUPRAVENTRICULAR
     Dosage: 2.5 MILLIGRAM;
     Route: 048
     Dates: start: 20110105

REACTIONS (2)
  - GENERAL PHYSICAL HEALTH DETERIORATION [None]
  - LEFT VENTRICULAR DYSFUNCTION [None]
